FAERS Safety Report 5888835-X (Version None)
Quarter: 2008Q3

REPORT INFORMATION
  Report Type: 
  Country: None (occurrence: None)
  Receive Date: 20080919
  Receipt Date: 20080529
  Transmission Date: 20090109
  Serious: No
  Sender: FDA-Public Use
  Company Number: A0730177A

PATIENT
  Sex: Male

DRUGS (1)
  1. AVANDARYL [Suspect]
     Route: 048

REACTIONS (1)
  - EXPIRED DRUG ADMINISTERED [None]
